FAERS Safety Report 14014545 (Version 2)
Quarter: 2017Q4

REPORT INFORMATION
  Report Type: Spontaneous
  Country: US (occurrence: US)
  Receive Date: 20170927
  Receipt Date: 20171010
  Transmission Date: 20180321
  Serious: Yes (Other)
  Sender: FDA-Public Use
  Company Number: US-AMGEN-USASP2017142247

PATIENT
  Age: 85 Year
  Sex: Female
  Weight: 120 kg

DRUGS (2)
  1. PROLIA [Suspect]
     Active Substance: DENOSUMAB
     Dosage: 60 MG, Q6MO
     Route: 065
     Dates: start: 201703
  2. PROLIA [Suspect]
     Active Substance: DENOSUMAB
     Indication: OSTEOPOROSIS POSTMENOPAUSAL
     Dosage: 60 MG, Q6MO
     Route: 065
     Dates: start: 201403, end: 2016

REACTIONS (2)
  - Urinary tract infection [Unknown]
  - Muscle spasms [Recovered/Resolved]

NARRATIVE: CASE EVENT DATE: 2017
